FAERS Safety Report 19684231 (Version 2)
Quarter: 2021Q3

REPORT INFORMATION
  Report Type: Spontaneous
  Country: IT (occurrence: IT)
  Receive Date: 20210811
  Receipt Date: 20210825
  Transmission Date: 20211014
  Serious: Yes (Other)
  Sender: FDA-Public Use
  Company Number: IT-AUROBINDO-AUR-APL-2021-033831

PATIENT
  Age: 19 Year
  Sex: Male
  Weight: 67 kg

DRUGS (2)
  1. RISPERIDONE ORAL SOLUTION [Suspect]
     Active Substance: RISPERIDONE
     Indication: BEHAVIOUR DISORDER
     Dosage: 1.5 MILLIGRAM, ONCE A DAY
     Route: 048
  2. SODIUM VALPROATE [Suspect]
     Active Substance: VALPROATE SODIUM
     Indication: BEHAVIOUR DISORDER
     Dosage: 1000 MILLIGRAM, ONCE A DAY
     Route: 065

REACTIONS (2)
  - Dystonia [Recovering/Resolving]
  - Oromandibular dystonia [Recovering/Resolving]
